FAERS Safety Report 8843378 (Version 1)
Quarter: 2012Q4

REPORT INFORMATION
  Report Type: 
  Country: CN (occurrence: CN)
  Receive Date: 20121016
  Receipt Date: 20121016
  Transmission Date: 20130627
  Serious: Yes (Death, Other)
  Sender: FDA-Public Use
  Company Number: CN-PFIZER INC-2012250817

PATIENT
  Age: 52 Year
  Sex: Female
  Weight: 45 kg

DRUGS (2)
  1. EFEXOR [Suspect]
     Indication: DEPRESSION
     Dosage: 75 mg, 1x/day
     Route: 048
     Dates: start: 20110313, end: 20110317
  2. BETAHISTINE MESILATE [Suspect]
     Indication: VERTIGO
     Dosage: 6 mg, 3x/day
     Route: 048
     Dates: start: 20110313, end: 20110317

REACTIONS (4)
  - Death [Fatal]
  - Depression [Unknown]
  - Vertigo [Unknown]
  - Sleep disorder [Unknown]
